FAERS Safety Report 15073932 (Version 2)
Quarter: 2018Q3

REPORT INFORMATION
  Report Type: Spontaneous
  Country: US (occurrence: US)
  Receive Date: 20180627
  Receipt Date: 20180703
  Transmission Date: 20181010
  Serious: Yes (Other)
  Sender: FDA-Public Use
  Company Number: US-SA-2018SA165170

PATIENT
  Age: 66 Year
  Sex: Male
  Weight: 116.11 kg

DRUGS (18)
  1. DUPIXENT [Suspect]
     Active Substance: DUPILUMAB
     Indication: DERMATITIS ATOPIC
     Dosage: 300 MG, QOW
     Route: 051
     Dates: start: 20170419, end: 201804
  2. GABAPENTIN. [Concomitant]
     Active Substance: GABAPENTIN
     Dosage: 3 DF, TID
     Route: 048
  3. FISH OIL [Concomitant]
     Active Substance: FISH OIL
     Dosage: UNK
  4. RANITIDINE. [Concomitant]
     Active Substance: RANITIDINE
     Dosage: UNK UNK, QD
  5. TOPICORT [DESOXIMETASONE] [Concomitant]
     Dosage: UNK UNK, BID
     Route: 061
  6. CLINDAMYCIN. [Concomitant]
     Active Substance: CLINDAMYCIN
     Dosage: UNK UNK, BID
     Route: 061
  7. DULERA [Concomitant]
     Active Substance: FORMOTEROL FUMARATE DIHYDRATE\MOMETASONE FUROATE
     Dosage: UNK UNK, BID
     Route: 055
  8. METANX [Concomitant]
     Active Substance: LEVOMEFOLATE CALCIUM\METHYLCOBALAMIN\PYRIDOXAL PHOSPHATE ANHYDROUS
     Dosage: UNK
  9. TRAMADOL. [Concomitant]
     Active Substance: TRAMADOL
     Dosage: 1 DF, QD
     Route: 048
  10. TESTOSTERONE. [Concomitant]
     Active Substance: TESTOSTERONE
     Dosage: 50 MG, QD
     Route: 061
  11. TOPROL XL [Concomitant]
     Active Substance: METOPROLOL SUCCINATE
     Dosage: 1 DF, QD
     Route: 048
  12. PROBIOTIC 10 [Concomitant]
     Dosage: UNK
  13. CICLOPIROX. [Concomitant]
     Active Substance: CICLOPIROX
     Dosage: UNK UNK, BID
     Route: 061
  14. FLECAINIDE [Concomitant]
     Active Substance: FLECAINIDE
     Dosage: 1 DF, Q12H
     Route: 048
  15. PROAIR HFA [Concomitant]
     Active Substance: ALBUTEROL SULFATE
     Dosage: UNK UNK, PRN
     Route: 055
  16. CLODAN [Concomitant]
     Active Substance: CLOBETASOL PROPIONATE
     Dosage: UNK UNK, QD
     Route: 061
  17. HPR [Concomitant]
     Dosage: UNK UNK, 1X
     Route: 061
  18. ALEVICYN DERMAL SPRAY [Concomitant]
     Indication: PRURITUS

REACTIONS (3)
  - Deep vein thrombosis [Recovered/Resolved]
  - Epistaxis [Recovered/Resolved]
  - Atrial fibrillation [Recovered/Resolved]
